FAERS Safety Report 8400584-2 (Version None)
Quarter: 2012Q2

REPORT INFORMATION
  Report Type: 
  Country: None (occurrence: None)
  Receive Date: 20120531
  Receipt Date: 20120419
  Transmission Date: 20120825
  Serious: Yes (Other)
  Sender: FDA-Public Use
  Company Number: CHPA2012US008666

PATIENT
  Age: 49 Year
  Sex: Female

DRUGS (1)
  1. VOLTAREN [Suspect]
     Indication: INFLAMMATION
     Dosage: 1 G, QID
     Route: 061
     Dates: start: 20100301

REACTIONS (8)
  - TENDONITIS [None]
  - SYSTEMIC LUPUS ERYTHEMATOSUS [None]
  - OFF LABEL USE [None]
  - BURSITIS [None]
  - GASTROOESOPHAGEAL REFLUX DISEASE [None]
  - DRUG ADMINISTERED AT INAPPROPRIATE SITE [None]
  - THERAPEUTIC RESPONSE UNEXPECTED [None]
  - DISEASE RECURRENCE [None]
